FAERS Safety Report 8337022-4 (Version None)
Quarter: 2012Q2

REPORT INFORMATION
  Report Type: 
  Country: None (occurrence: None)
  Receive Date: 20120504
  Receipt Date: 20110729
  Transmission Date: 20120825
  Serious: No
  Sender: FDA-Public Use
  Company Number: US-TEVA-2011002946

PATIENT
  Sex: Male
  Weight: 69.916 kg

DRUGS (8)
  1. PROZAC [Concomitant]
  2. NUVIGIL [Suspect]
     Dosage: 25 MILLIGRAM;
     Route: 048
     Dates: start: 20110613, end: 20110613
  3. NUVIGIL [Suspect]
     Dosage: 50 MILLIGRAM;
     Route: 048
     Dates: start: 20110613, end: 20110613
  4. NUVIGIL [Suspect]
     Route: 048
     Dates: end: 20110628
  5. NUVIGIL [Suspect]
     Dosage: 75 ;
     Route: 048
     Dates: start: 20110614
  6. NUVIGIL [Suspect]
     Indication: FATIGUE
     Dosage: 50 MILLIGRAM;
     Route: 048
     Dates: start: 20110608, end: 20110601
  7. KLONOPIN [Concomitant]
  8. ZYPREXA [Concomitant]

REACTIONS (9)
  - FEELING JITTERY [None]
  - INTENTIONAL DRUG MISUSE [None]
  - MOOD ALTERED [None]
  - DRUG TOLERANCE [None]
  - INSOMNIA [None]
  - DRUG INEFFECTIVE [None]
  - ASTHENIA [None]
  - HEADACHE [None]
  - ABDOMINAL PAIN UPPER [None]
